FAERS Safety Report 18472956 (Version 1)
Quarter: 2020Q4

REPORT INFORMATION
  Report Type: Spontaneous
  Country: US (occurrence: US)
  Receive Date: 20201105
  Receipt Date: 20201105
  Transmission Date: 20210114
  Serious: No
  Sender: FDA-Public Use
  Company Number: None

PATIENT
  Age: 83 Year
  Sex: Male
  Weight: 63.77 kg

DRUGS (6)
  1. TAMSULOSIN 0.4MG [Concomitant]
     Active Substance: TAMSULOSIN
  2. GALANTAMINE ER 8MG [Concomitant]
  3. LISINOPRIL-HYDROCHLOROTHIAZIDE 20-12.5MG [Concomitant]
  4. PRAVASTATIN. [Concomitant]
     Active Substance: PRAVASTATIN
  5. GABAPENTIN 300MG [Concomitant]
     Active Substance: GABAPENTIN
  6. CAPECITABINE. [Suspect]
     Active Substance: CAPECITABINE
     Indication: RECTOSIGMOID CANCER
     Dosage: ?          OTHER FREQUENCY:AM AND 1500MG PM;?
     Route: 048
     Dates: start: 20200731, end: 20201105

REACTIONS (3)
  - Rib fracture [None]
  - Asthenia [None]
  - Fall [None]

NARRATIVE: CASE EVENT DATE: 20201105
